FAERS Safety Report 6101913-5 (Version None)
Quarter: 2009Q1

REPORT INFORMATION
  Report Type: 
  Country: None (occurrence: None)
  Receive Date: 20090304
  Receipt Date: 20090304
  Transmission Date: 20090719
  Serious: Yes (Other)
  Sender: FDA-Public Use
  Company Number: US-PFIZER INC-2009157337

PATIENT
  Sex: Female
  Weight: 81.646 kg

DRUGS (1)
  1. XALATAN [Suspect]
     Indication: GLAUCOMA
     Dosage: UNK
     Route: 047
     Dates: start: 20080101

REACTIONS (4)
  - CATARACT [None]
  - DIABETES MELLITUS [None]
  - GLAUCOMA [None]
  - INTRAOCULAR PRESSURE INCREASED [None]
